FAERS Safety Report 22975418 (Version 6)
Quarter: 2025Q1

REPORT INFORMATION
  Report Type: Spontaneous
  Country: JP (occurrence: JP)
  Receive Date: 20230924
  Receipt Date: 20250210
  Transmission Date: 20250409
  Serious: Yes (Death, Life-Threatening, Hospitalization, Other)
  Sender: BRISTOL-MYERS SQUIBB COMPANY
  Company Number: JP-BRISTOL-MYERS SQUIBB COMPANY-2023-132574

PATIENT
  Age: 72 Year
  Sex: Male
  Weight: 60 kg

DRUGS (7)
  1. YERVOY [Suspect]
     Active Substance: IPILIMUMAB
     Indication: Malignant melanoma
     Route: 041
     Dates: start: 20230906, end: 20230906
  2. OPDIVO [Suspect]
     Active Substance: NIVOLUMAB
     Indication: Malignant melanoma
     Route: 041
     Dates: start: 20230906, end: 20230906
  3. DIOVAN [Concomitant]
     Active Substance: VALSARTAN
     Indication: Product used for unknown indication
     Route: 048
  4. EZETIMIBE [Concomitant]
     Active Substance: EZETIMIBE
     Indication: Product used for unknown indication
     Route: 048
  5. NIFEDIPINE [Concomitant]
     Active Substance: NIFEDIPINE
     Indication: Product used for unknown indication
     Route: 048
  6. CALONAL [Concomitant]
     Active Substance: ACETAMINOPHEN
     Indication: Product used for unknown indication
     Route: 048
  7. ESOMEPRAZOLE SAWAI [Concomitant]
     Indication: Product used for unknown indication
     Route: 048

REACTIONS (2)
  - Immune-mediated lung disease [Fatal]
  - Condition aggravated [Fatal]

NARRATIVE: CASE EVENT DATE: 20230910
